FAERS Safety Report 13074377 (Version 2)
Quarter: 2017Q1

REPORT INFORMATION
  Report Type: Spontaneous
  Country: US (occurrence: US)
  Receive Date: 20161230
  Receipt Date: 20170105
  Transmission Date: 20170428
  Serious: Yes (Death, Other)
  Sender: FDA-Public Use
  Company Number: US-BRISTOL-MYERS SQUIBB COMPANY-BMS-2016-110420

PATIENT
  Sex: Male
  Weight: 91.1 kg

DRUGS (3)
  1. ELIQUIS [Suspect]
     Active Substance: APIXABAN
     Indication: VENTRICULAR TACHYCARDIA
     Dosage: 5 MG, BID
     Route: 065
  2. TIKOSYN [Suspect]
     Active Substance: DOFETILIDE
     Indication: PRODUCT USED FOR UNKNOWN INDICATION
     Dosage: 0.5 MG, UNK
     Route: 065
     Dates: end: 20161004
  3. ELIQUIS [Suspect]
     Active Substance: APIXABAN
     Indication: CONGESTIVE CARDIOMYOPATHY
     Route: 065

REACTIONS (4)
  - Chronic obstructive pulmonary disease [Fatal]
  - Off label use [Unknown]
  - Aortic disorder [Fatal]
  - Ventricular tachycardia [Fatal]
